FAERS Safety Report 4357494-X (Version None)
Quarter: 2004Q2

REPORT INFORMATION
  Report Type: 
  Country: None (occurrence: None)
  Receive Date: 20040512
  Receipt Date: 20040512
  Transmission Date: 20050107
  Serious: Yes (Life-Threatening, Hospitalization)
  Sender: FDA-Public Use
  Company Number: None

PATIENT
  Age: 76 Year
  Sex: Male
  Weight: 93.3 kg

DRUGS (2)
  1. NADOLOL [Suspect]
     Indication: PORTAL HYPERTENSION
     Dosage: 20 MG QD ORAL
     Route: 048
     Dates: start: 20040216, end: 20040218
  2. AMIODARONE HCL [Suspect]
     Indication: ATRIAL FIBRILLATION
     Dosage: 200MG QD ORAL
     Route: 048
     Dates: start: 20040216, end: 20040218

REACTIONS (4)
  - EXTRASYSTOLES [None]
  - SINUS ARREST [None]
  - SINUS BRADYCARDIA [None]
  - SOMNOLENCE [None]
